FAERS Safety Report 14901281 (Version 1)
Quarter: 2018Q2

REPORT INFORMATION
  Report Type: Spontaneous
  Country: BR (occurrence: BR)
  Receive Date: 20180516
  Receipt Date: 20180516
  Transmission Date: 20180711
  Serious: Yes (Other)
  Sender: FDA-Public Use
  Company Number: BR-AMGEN-BRASP2018063630

PATIENT
  Age: 61 Year
  Sex: Female

DRUGS (1)
  1. MIMPARA [Suspect]
     Active Substance: CINACALCET HYDROCHLORIDE
     Indication: CHRONIC KIDNEY DISEASE
     Dosage: 30 MG, TID
     Route: 065
     Dates: start: 2013

REACTIONS (4)
  - Parathyroidectomy [Unknown]
  - Transplant [Unknown]
  - Off label use [Unknown]
  - Dialysis [Unknown]

NARRATIVE: CASE EVENT DATE: 2016
